FAERS Safety Report 4906773-3 (Version None)
Quarter: 2006Q1

REPORT INFORMATION
  Report Type: 
  Country: None (occurrence: None)
  Receive Date: 20060207
  Receipt Date: 20060123
  Transmission Date: 20060701
  Serious: Yes (Death)
  Sender: FDA-Public Use
  Company Number: CA200601004210

PATIENT
  Age: 41 Year
  Sex: Male

DRUGS (1)
  1. XIGRIS (DROTRECOGIN ALFA (ACTIVATED)) VIAL [Suspect]
     Dates: start: 20060120

REACTIONS (2)
  - PNEUMONIA [None]
  - SEPSIS [None]
